FAERS Safety Report 21400893 (Version 1)
Quarter: 2022Q4

REPORT INFORMATION
  Report Type: Report from Study
  Country: US (occurrence: US)
  Receive Date: 20221003
  Receipt Date: 20221003
  Transmission Date: 20230113
  Serious: No
  Sender: FDA-Public Use
  Company Number: US-ABBVIE-4133269

PATIENT
  Sex: Male

DRUGS (16)
  1. HUMIRA [Suspect]
     Active Substance: ADALIMUMAB
     Indication: Psoriasis
     Route: 058
  2. HYDROCODONE- TAB 7.5-325M [Concomitant]
     Indication: Product used for unknown indication
  3. ALPRAZOLAM TAB 2MG [Concomitant]
     Indication: Product used for unknown indication
  4. JANUVIA TAB 100MG [Concomitant]
     Indication: Product used for unknown indication
  5. EZETIMIBE [Concomitant]
     Active Substance: EZETIMIBE
     Indication: Product used for unknown indication
  6. REPATHA SURE SOA 140MG/ML [Concomitant]
     Indication: Product used for unknown indication
  7. LEVOTHYR XIN TAB 25MCG [Concomitant]
     Indication: Product used for unknown indication
  8. ENTRESTO TAB 24- 26MG [Concomitant]
     Indication: Product used for unknown indication
  9. ALLOPURINOL TAB 100MG [Concomitant]
     Indication: Product used for unknown indication
  10. SPIRONOLACTO TAB 25MG [Concomitant]
     Indication: Product used for unknown indication
  11. CARVEDILOL [Concomitant]
     Active Substance: CARVEDILOL
     Indication: Product used for unknown indication
  12. TAMSULOSIN H CAP 0.4MG [Concomitant]
     Indication: Product used for unknown indication
  13. FUROSEMIDE TAB 20MG [Concomitant]
     Indication: Product used for unknown indication
  14. GLIPIZIDE TAB 10MG [Concomitant]
     Indication: Product used for unknown indication
  15. CITALOPRAM H TAB 20MG [Concomitant]
     Indication: Product used for unknown indication
  16. LANTUS SOLOS SOP 100UNIT [Concomitant]
     Indication: Product used for unknown indication

REACTIONS (1)
  - Drug hypersensitivity [Recovered/Resolved]
